FAERS Safety Report 17782923 (Version 1)
Quarter: 2020Q2

REPORT INFORMATION
  Report Type: Spontaneous
  Country: US (occurrence: US)
  Receive Date: 20200513
  Receipt Date: 20200513
  Transmission Date: 20200714
  Serious: Yes (Disabling, Other)
  Sender: FDA-Public Use
  Company Number: None

PATIENT
  Age: 49 Year
  Sex: Female
  Weight: 63 kg

DRUGS (11)
  1. WOMEN^S DAILY MULTIVITAMIN + MINERAL [Concomitant]
  2. CALCIUM + MAGNESIUM [Concomitant]
  3. DAILY PROBIOTIC [Concomitant]
  4. AIMOVIG [Concomitant]
     Active Substance: ERENUMAB-AOOE
  5. RIZATRIPTAN. [Concomitant]
     Active Substance: RIZATRIPTAN
  6. VITAMIN D3 [Concomitant]
     Active Substance: CHOLECALCIFEROL
  7. ESTROVERA RHAPONTIC RHUBARB [Concomitant]
  8. VITAMIN B COMPLEX [Concomitant]
     Active Substance: CYANOCOBALAMIN\DEXPANTHENOL\NIACINAMIDE\PYRIDOXINE HYDROCHLORIDE\RIBOFLAVIN 5^-PHOSPHATE SODIUM\THIAMINE HYDROCHLORIDE\VITAMIN B COMPLEX
  9. VITAMIN C [Concomitant]
     Active Substance: ASCORBIC ACID
  10. CYCLOSPORINE/CHONDROITIN SULFATE PF [Suspect]
     Active Substance: CYCLOSPORINE
     Indication: DRY EYE
     Dosage: ?          QUANTITY:1 DROP(S);?
     Route: 047
     Dates: start: 20200201, end: 20200302
  11. TOPIRAMATE 50MG [Concomitant]
     Active Substance: TOPIRAMATE

REACTIONS (5)
  - Hot flush [None]
  - Nail discolouration [None]
  - Pyrexia [None]
  - Nail disorder [None]
  - Onychoclasis [None]

NARRATIVE: CASE EVENT DATE: 20200201
